FAERS Safety Report 6335427-4 (Version None)
Quarter: 2009Q3

REPORT INFORMATION
  Report Type: 
  Country: None (occurrence: None)
  Receive Date: 20090831
  Receipt Date: 20090826
  Transmission Date: 20100115
  Serious: Yes (Other)
  Sender: FDA-Public Use
  Company Number: PHHY2009BE10373

PATIENT
  Sex: Female

DRUGS (8)
  1. RASILEZ [Suspect]
     Indication: HYPERTENSION
     Dosage: 150 MG DAILY
     Route: 048
     Dates: start: 20080602
  2. BACTRIM [Concomitant]
     Indication: INFECTION
     Dosage: UNK
     Dates: start: 20090213
  3. LIPANTHYL [Concomitant]
  4. OMEPRAZOLE [Concomitant]
  5. ASAFLOW [Concomitant]
  6. METFORMAX [Concomitant]
     Dosage: 3 X 850 MG/DAY
  7. DILTIAZEM HCL [Concomitant]
  8. ALPRAZOLAM [Concomitant]

REACTIONS (6)
  - BRONCHITIS [None]
  - GAMMA-GLUTAMYLTRANSFERASE INCREASED [None]
  - HEPATIC STEATOSIS [None]
  - HEPATOMEGALY [None]
  - INFECTION [None]
  - WHEEZING [None]
